FAERS Safety Report 5345821-6 (Version None)
Quarter: 2007Q2

REPORT INFORMATION
  Report Type: 
  Country: None (occurrence: None)
  Receive Date: 20070601
  Receipt Date: 20070521
  Transmission Date: 20071010
  Serious: Yes (Other)
  Sender: FDA-Public Use
  Company Number: 2007US001169

PATIENT
  Age: 51 Year
  Sex: Female

DRUGS (5)
  1. AMBISOME [Suspect]
     Indication: SYSTEMIC MYCOSIS
     Dosage: SEE IMAGE
     Route: 041
     Dates: start: 20070301, end: 20070315
  2. AMBISOME [Suspect]
     Indication: SYSTEMIC MYCOSIS
     Dosage: SEE IMAGE
     Route: 041
     Dates: start: 20070322, end: 20070507
  3. ITRACONAZOLE [Suspect]
     Indication: DRUG USE FOR UNKNOWN INDICATION
  4. GASTER [Concomitant]
  5. DOGMATYL [Concomitant]

REACTIONS (1)
  - PERICARDIAL EFFUSION [None]
